FAERS Safety Report 18052792 (Version 2)
Quarter: 2021Q2

REPORT INFORMATION
  Report Type: Spontaneous
  Country: AU (occurrence: AU)
  Receive Date: 20200722
  Receipt Date: 20210623
  Transmission Date: 20210717
  Serious: Yes (Death)
  Sender: FDA-Public Use
  Company Number: AU-TEVA-2020-AU-1803954

PATIENT
  Age: 48 Year
  Sex: Male

DRUGS (2)
  1. MORPHINE [Suspect]
     Active Substance: MORPHINE
     Route: 065
     Dates: start: 2014
  2. QUETIAPINE FUMARATE. [Suspect]
     Active Substance: QUETIAPINE FUMARATE
     Route: 065

REACTIONS (2)
  - Accidental overdose [Fatal]
  - Intentional product misuse [Unknown]

NARRATIVE: CASE EVENT DATE: 2014
